FAERS Safety Report 15777885 (Version 1)
Quarter: 2018Q4

REPORT INFORMATION
  Report Type: Spontaneous
  Country: US (occurrence: US)
  Receive Date: 20181231
  Receipt Date: 20181231
  Transmission Date: 20190205
  Serious: Yes (Hospitalization)
  Sender: FDA-Public Use
  Company Number: None

PATIENT
  Sex: Male

DRUGS (12)
  1. TOBI PODHALER [Concomitant]
     Active Substance: TOBRAMYCIN
  2. CAYSTON [Concomitant]
     Active Substance: AZTREONAM
  3. SOURCECF [Concomitant]
     Active Substance: VITAMINS
  4. SODIUM CHLORIDE. [Concomitant]
     Active Substance: SODIUM CHLORIDE
  5. FLUTICASONE PROPIONATE. [Concomitant]
     Active Substance: FLUTICASONE PROPIONATE
  6. AZITHROMYCIN ANHYDROUS. [Concomitant]
     Active Substance: AZITHROMYCIN ANHYDROUS
  7. CREON [Concomitant]
     Active Substance: PANCRELIPASE AMYLASE\PANCRELIPASE LIPASE\PANCRELIPASE PROTEASE
  8. LINEZOLID. [Concomitant]
     Active Substance: LINEZOLID
  9. ALBUTEROL. [Suspect]
     Active Substance: ALBUTEROL
     Indication: INFECTIVE PULMONARY EXACERBATION OF CYSTIC FIBROSIS
  10. PULMOZYME [Suspect]
     Active Substance: DORNASE ALFA
     Indication: INFECTIVE PULMONARY EXACERBATION OF CYSTIC FIBROSIS
  11. PARI ALTERA NEBULIZAR [Concomitant]
  12. CHOICEFUL MULTIVITMAIN [Concomitant]

REACTIONS (3)
  - Product distribution issue [None]
  - Product dose omission [None]
  - Dyspnoea [None]
